FAERS Safety Report 6094610-6 (Version None)
Quarter: 2009Q1

REPORT INFORMATION
  Report Type: 
  Country: None (occurrence: None)
  Receive Date: 20090226
  Receipt Date: 20090218
  Transmission Date: 20090719
  Serious: Yes (Other)
  Sender: FDA-Public Use
  Company Number: PHBS2009GB00872

PATIENT

DRUGS (12)
  1. KETOTIFEN HYDROGEN FUMARATE [Suspect]
  2. CHLORPHENTERMINE 65MG TAB [Concomitant]
     Indication: PREMEDICATION
  3. RANITIDINE [Concomitant]
     Indication: PREMEDICATION
  4. NITROUS OXIDE [Concomitant]
     Indication: INDUCTION AND MAINTENANCE OF ANAESTHESIA
  5. OXYGEN [Concomitant]
     Indication: INDUCTION AND MAINTENANCE OF ANAESTHESIA
  6. SEVOFLURANE [Concomitant]
     Indication: INDUCTION OF ANAESTHESIA
  7. ISOFLURANE [Concomitant]
     Indication: MAINTENANCE OF ANAESTHESIA
  8. FENTANYL [Concomitant]
     Indication: INTRAOPERATIVE CARE
  9. ONDANSETRON [Concomitant]
     Indication: ANTIEMETIC SUPPORTIVE CARE
  10. DEXAMETHASONE [Concomitant]
     Indication: ANTIEMETIC SUPPORTIVE CARE
  11. HYOSCINE HBR HYT [Concomitant]
  12. PARACETAMOL [Concomitant]
     Indication: POSTOPERATIVE ANALGESIA

REACTIONS (4)
  - DIARRHOEA [None]
  - ENDOSCOPY GASTROINTESTINAL [None]
  - FLUSHING [None]
  - TRYPTASE INCREASED [None]
